FAERS Safety Report 14241265 (Version 1)
Quarter: 2017Q4

REPORT INFORMATION
  Report Type: Spontaneous
  Country: US (occurrence: US)
  Receive Date: 20171130
  Receipt Date: 20171130
  Transmission Date: 20180321
  Serious: No
  Sender: FDA-Public Use
  Company Number: US-BIOGEN-2017BI00488476

PATIENT
  Age: 60 Year
  Sex: Female

DRUGS (1)
  1. AVONEX [Suspect]
     Active Substance: INTERFERON BETA-1A
     Indication: MULTIPLE SCLEROSIS
     Route: 065
     Dates: start: 20171018

REACTIONS (4)
  - Dyspnoea [Unknown]
  - Rash erythematous [Unknown]
  - Pruritus [Unknown]
  - Furuncle [Unknown]

NARRATIVE: CASE EVENT DATE: 20171119
